FAERS Safety Report 21972295 (Version 1)
Quarter: 2023Q1

REPORT INFORMATION
  Report Type: Spontaneous
  Country: US (occurrence: None)
  Receive Date: 20230207
  Receipt Date: 20230207
  Transmission Date: 20230417
  Serious: Yes (Other)
  Sender: FDA-Public Use
  Company Number: None

PATIENT
  Age: 83 Year
  Sex: Male

DRUGS (2)
  1. EVEROLIMUS [Suspect]
     Active Substance: EVEROLIMUS
     Indication: Hodgkin^s disease
     Dosage: FREQUENCY : DAILY;?
     Route: 048
     Dates: start: 20230113, end: 20230130
  2. EVEROLIMUS [Concomitant]
     Active Substance: EVEROLIMUS
     Dates: start: 20230113, end: 20230130

REACTIONS (6)
  - Fatigue [None]
  - Asthenia [None]
  - Peripheral swelling [None]
  - Fall [None]
  - Bedridden [None]
  - Mobility decreased [None]

NARRATIVE: CASE EVENT DATE: 20230119
